APPROVED DRUG PRODUCT: DEXTROAMPHETAMINE SULFATE
Active Ingredient: DEXTROAMPHETAMINE SULFATE
Strength: 5MG/5ML
Dosage Form/Route: SOLUTION;ORAL
Application: A040776 | Product #001 | TE Code: AA
Applicant: PRASCO LLC DBA PRASCO LABORATORIES
Approved: Jan 29, 2008 | RLD: No | RS: Yes | Type: RX